FAERS Safety Report 7944128-8 (Version None)
Quarter: 2011Q4

REPORT INFORMATION
  Report Type: 
  Country: None (occurrence: None)
  Receive Date: 20111128
  Receipt Date: 20111115
  Transmission Date: 20120403
  Serious: Yes (Hospitalization)
  Sender: FDA-Public Use
  Company Number: US-ASTRAZENECA-2011SE08801

PATIENT
  Age: 62 Year
  Sex: Female

DRUGS (1)
  1. NEXIUM [Suspect]
     Route: 048
     Dates: end: 20111001

REACTIONS (7)
  - GASTRIC NEOPLASM [None]
  - DRUG DOSE OMISSION [None]
  - CHEST DISCOMFORT [None]
  - MALAISE [None]
  - EPISTAXIS [None]
  - RETCHING [None]
  - OESOPHAGEAL DISCOMFORT [None]
